FAERS Safety Report 8317322-4 (Version None)
Quarter: 2012Q2

REPORT INFORMATION
  Report Type: 
  Country: None (occurrence: None)
  Receive Date: 20120427
  Receipt Date: 20120423
  Transmission Date: 20120825
  Serious: Yes (Hospitalization)
  Sender: FDA-Public Use
  Company Number: FI-ASTELLAS-2012US004169

PATIENT
  Sex: Male

DRUGS (3)
  1. CARBOPLATIN [Concomitant]
     Indication: LUNG ADENOCARCINOMA
     Dosage: UNK
     Route: 065
  2. VINORELBINE [Concomitant]
     Indication: LUNG ADENOCARCINOMA
     Dosage: UNK
     Route: 065
  3. TARCEVA [Suspect]
     Indication: LUNG ADENOCARCINOMA
     Dosage: 150 MG, UID/QD
     Route: 048
     Dates: start: 20120327

REACTIONS (2)
  - BALANCE DISORDER [None]
  - NAUSEA [None]
